FAERS Safety Report 5689932-4 (Version None)
Quarter: 2008Q1

REPORT INFORMATION
  Report Type: 
  Country: None (occurrence: None)
  Receive Date: 20080331
  Receipt Date: 20080331
  Transmission Date: 20080703
  Serious: Yes (Life-Threatening, Hospitalization)
  Sender: FDA-Public Use
  Company Number: None

PATIENT
  Age: 74 Year
  Sex: Male
  Weight: 101.6 kg

DRUGS (1)
  1. WARFARIN SODIUM [Suspect]
     Dosage: 22.5MG QWEEK PO
     Route: 048
     Dates: start: 20070803

REACTIONS (6)
  - ENDOSCOPY GASTROINTESTINAL ABNORMAL [None]
  - GASTROINTESTINAL HAEMORRHAGE [None]
  - HAEMORRHAGE [None]
  - INTERNATIONAL NORMALISED RATIO ABNORMAL [None]
  - LARGE INTESTINAL ULCER HAEMORRHAGE [None]
  - MUSCLE INJURY [None]
